FAERS Safety Report 6328728-7 (Version None)
Quarter: 2009Q3

REPORT INFORMATION
  Report Type: 
  Country: None (occurrence: None)
  Receive Date: 20090826
  Receipt Date: 20090818
  Transmission Date: 20100115
  Serious: Yes (Other)
  Sender: FDA-Public Use
  Company Number: ES-ASTRAZENECA-2009SE08522

PATIENT
  Age: 14 Year
  Sex: Male
  Weight: 50.5 kg

DRUGS (4)
  1. SEROQUEL [Suspect]
     Indication: PSYCHOTIC DISORDER
     Route: 048
     Dates: end: 20090408
  2. SEROQUEL [Suspect]
     Route: 048
     Dates: start: 20090408, end: 20090416
  3. SEROQUEL [Suspect]
     Route: 048
     Dates: start: 20090416
  4. RIVOTRIL [Concomitant]
     Indication: SEDATION
     Route: 048

REACTIONS (1)
  - CONJUNCTIVAL HYPERAEMIA [None]
